FAERS Safety Report 24532341 (Version 2)
Quarter: 2024Q4

REPORT INFORMATION
  Report Type: Spontaneous
  Country: US (occurrence: US)
  Receive Date: 20241022
  Receipt Date: 20241022
  Transmission Date: 20250114
  Serious: Yes (Other)
  Sender: ROCHE
  Company Number: US-ROCHE-10000109472

PATIENT
  Age: 35 Year
  Sex: Male
  Weight: 129.27 kg

DRUGS (3)
  1. OCREVUS [Suspect]
     Active Substance: OCRELIZUMAB
     Indication: Relapsing-remitting multiple sclerosis
     Route: 042
  2. TYLENOL [Concomitant]
     Active Substance: ACETAMINOPHEN
     Indication: Eye pain
     Route: 042
     Dates: start: 20240926, end: 20240926
  3. PREDNISOLONE [Concomitant]
     Active Substance: PREDNISOLONE
     Indication: Optic neuritis
     Dosage: RIGHT EYE
     Route: 047
     Dates: start: 20240926

REACTIONS (7)
  - Optic neuritis [Not Recovered/Not Resolved]
  - Pruritus [Recovered/Resolved]
  - Headache [Recovered/Resolved]
  - Somnolence [Recovered/Resolved]
  - Weight fluctuation [Unknown]
  - Multiple sclerosis relapse [Unknown]
  - Eye pain [Not Recovered/Not Resolved]

NARRATIVE: CASE EVENT DATE: 20240924
